FAERS Safety Report 15956606 (Version 2)
Quarter: 2019Q1

REPORT INFORMATION
  Report Type: Spontaneous
  Country: GB (occurrence: GB)
  Receive Date: 20190213
  Receipt Date: 20190225
  Transmission Date: 20190417
  Serious: No
  Sender: FDA-Public Use
  Company Number: GB-PFIZER INC-2019057821

PATIENT
  Age: 16 Year
  Sex: Female

DRUGS (5)
  1. PHENYTOIN. [Suspect]
     Active Substance: PHENYTOIN
     Indication: EPILEPSY
     Dosage: 150 MG, 1X/DAY (150 MG, QD)
  2. PHENOBARBITAL. [Suspect]
     Active Substance: PHENOBARBITAL
     Indication: EPILEPSY
     Dosage: 135 MG, DAILY
  3. PHENOBARBITAL. [Suspect]
     Active Substance: PHENOBARBITAL
     Dosage: 90 MG, DAILY (. WHEN HER PERIOD WAS 1 WEEK LATE PHENOBARBITONE REDUCED TO 90 MG DAILY)
  4. PHENYTOIN. [Suspect]
     Active Substance: PHENYTOIN
     Dosage: 300 MG, DAILY (WHEN HER PERIOD WAS 1 WEEK LATE THE PHENYTOIN THERAPY WAS INCREASED TO 300 MG DAILY)
  5. PHENYTOIN. [Suspect]
     Active Substance: PHENYTOIN
     Dosage: 600 MG, DAILY (4 WEEKS LATER, THE PATIENT INCREASED DOSE AND ONTINUED THROUGHOUT HER PREGNANCY)

REACTIONS (2)
  - Product administration error [Unknown]
  - Overdose [Unknown]
